FAERS Safety Report 9551921 (Version 1)
Quarter: 2013Q3

REPORT INFORMATION
  Report Type: Spontaneous
  Country: US (occurrence: US)
  Receive Date: 20130925
  Receipt Date: 20130925
  Transmission Date: 20140515
  Serious: Yes (Other)
  Sender: FDA-Public Use
  Company Number: US-JNJFOC-20130912502

PATIENT
  Sex: Female
  Weight: 79.38 kg

DRUGS (5)
  1. RISPERDAL CONSTA [Suspect]
     Indication: SCHIZOPHRENIA
     Route: 030
     Dates: start: 2008
  2. SEROQUEL [Concomitant]
     Route: 065
  3. ZOLOFT [Concomitant]
     Indication: PSYCHOTIC DISORDER
     Route: 065
  4. TRAZODONE [Concomitant]
     Indication: SLEEP DISORDER
     Route: 065
  5. KLONOPIN [Concomitant]
     Route: 065

REACTIONS (4)
  - Drug dependence [Unknown]
  - Drug withdrawal syndrome [Unknown]
  - Malaise [Unknown]
  - Muscle spasms [Unknown]
